FAERS Safety Report 12076699 (Version 1)
Quarter: 2016Q1

REPORT INFORMATION
  Report Type: Spontaneous
  Country: US (occurrence: US)
  Receive Date: 20160215
  Receipt Date: 20160215
  Transmission Date: 20160526
  Serious: Yes (Other)
  Sender: FDA-Public Use
  Company Number: US-TEVA-635168ACC

PATIENT
  Age: 30 Year
  Sex: Female
  Weight: 112.59 kg

DRUGS (1)
  1. PARAGARD T 380A [Suspect]
     Active Substance: COPPER
     Indication: CONTRACEPTION
     Dates: start: 20150902, end: 20160208

REACTIONS (4)
  - Device dislocation [Recovered/Resolved]
  - Pelvic discomfort [Unknown]
  - Vaginal infection [Not Recovered/Not Resolved]
  - Vaginal odour [Unknown]

NARRATIVE: CASE EVENT DATE: 20160208
